FAERS Safety Report 7744326 (Version 6)
Quarter: 2013Q2

REPORT INFORMATION
  Report Type: Spontaneous
  Country: US (occurrence: US)
  Receive Date: 20101230
  Receipt Date: 20130506
  Transmission Date: 20140414
  Serious: Yes (Hospitalization, Disabling)
  Sender: FDA-Public Use
  Company Number: US-BAYER-2010-008632

PATIENT
  Age: 17 Year
  Sex: Female
  Weight: 58.96 kg

DRUGS (7)
  1. YASMIN [Suspect]
     Indication: PREMENSTRUAL SYNDROME
     Dosage: UNK
     Dates: start: 2007, end: 200806
  2. OCELLA [Suspect]
     Indication: PREMENSTRUAL SYNDROME
     Dosage: UNK
     Dates: start: 200807, end: 200811
  3. OMEPRAZOLE [Concomitant]
     Indication: GASTROOESOPHAGEAL REFLUX DISEASE
     Dosage: UNK
     Dates: start: 200610
  4. LEXAPRO [Concomitant]
     Indication: DEPRESSION
     Dosage: UNK
     Dates: start: 200503, end: 201005
  5. WELLBUTRIN [Concomitant]
     Indication: DEPRESSION
     Dosage: 250 MG, QD
     Route: 048
     Dates: start: 200601, end: 201005
  6. CALCIUM [CALCIUM] [Concomitant]
  7. ORAL CONTRACEPTIVE NOS [Concomitant]

REACTIONS (14)
  - Cerebrovascular accident [None]
  - Brain injury [None]
  - Mental impairment [None]
  - Amnesia [None]
  - Visual acuity reduced [None]
  - Pain [None]
  - Depression [None]
  - Aphasia [None]
  - Asthenia [None]
  - Hypoaesthesia [None]
  - Off label use [None]
  - Injury [None]
  - Anxiety [None]
  - Visual impairment [None]
